FAERS Safety Report 16849787 (Version 1)
Quarter: 2019Q3

REPORT INFORMATION
  Report Type: Spontaneous
  Country: US (occurrence: US)
  Receive Date: 20190802
  Receipt Date: 20190802
  Transmission Date: 20191005
  Serious: No
  Sender: FDA-Public Use
  Company Number: None

PATIENT
  Age: 81 Year
  Sex: Male

DRUGS (2)
  1. NOVOLOG [Suspect]
     Active Substance: INSULIN ASPART
  2. LANTUS SOLOSTAR [Suspect]
     Active Substance: INSULIN GLARGINE

REACTIONS (8)
  - Device use error [None]
  - Wrong technique in product usage process [None]
  - Gait disturbance [None]
  - Cerebrovascular accident [None]
  - Intentional product use issue [None]
  - Dose calculation error [None]
  - Hypoglycaemia [None]
  - Dysarthria [None]
